FAERS Safety Report 9380676 (Version 6)
Quarter: 2014Q4

REPORT INFORMATION
  Report Type: Report from Study
  Country: JP (occurrence: JP)
  Receive Date: 20130702
  Receipt Date: 20141229
  Transmission Date: 20150529
  Serious: Yes (Hospitalization)
  Sender: FDA-Public Use
  Company Number: JP-JNJFOC-20130620147

PATIENT
  Age: 37 Year
  Sex: Male
  Weight: 75 kg

DRUGS (11)
  1. STELARA [Suspect]
     Active Substance: USTEKINUMAB
     Indication: PUSTULAR PSORIASIS
     Route: 058
     Dates: start: 20130309
  2. STELARA [Suspect]
     Active Substance: USTEKINUMAB
     Indication: PUSTULAR PSORIASIS
     Route: 058
     Dates: start: 20130105
  3. STELARA [Suspect]
     Active Substance: USTEKINUMAB
     Indication: PUSTULAR PSORIASIS
     Route: 058
     Dates: start: 20130704
  4. DERMOVATE [Concomitant]
     Active Substance: CLOBETASOL
     Indication: PUSTULAR PSORIASIS
     Route: 062
  5. FOSMICIN-S [Concomitant]
     Active Substance: FOSFOMYCIN SODIUM
     Indication: ENTERITIS INFECTIOUS
     Route: 065
     Dates: start: 20130323, end: 20130325
  6. BONALFA [Concomitant]
     Indication: PUSTULAR PSORIASIS
     Route: 062
  7. STELARA [Suspect]
     Active Substance: USTEKINUMAB
     Indication: PUSTULAR PSORIASIS
     Route: 058
     Dates: start: 20120910
  8. TALION [Concomitant]
     Active Substance: BEPOTASTINE
     Indication: PUSTULAR PSORIASIS
     Route: 048
     Dates: start: 201303
  9. STELARA [Suspect]
     Active Substance: USTEKINUMAB
     Indication: PUSTULAR PSORIASIS
     Route: 058
     Dates: start: 20121222
  10. STELARA [Suspect]
     Active Substance: USTEKINUMAB
     Indication: PUSTULAR PSORIASIS
     Route: 058
     Dates: start: 20121013
  11. STELARA [Suspect]
     Active Substance: USTEKINUMAB
     Indication: PUSTULAR PSORIASIS
     Route: 058
     Dates: start: 20130406

REACTIONS (3)
  - Off label use [Unknown]
  - Drug effect incomplete [Unknown]
  - Enteritis infectious [Recovering/Resolving]

NARRATIVE: CASE EVENT DATE: 20120910
